FAERS Safety Report 6465965-5 (Version None)
Quarter: 2009Q4

REPORT INFORMATION
  Report Type: 
  Country: None (occurrence: None)
  Receive Date: 20091201
  Receipt Date: 20091201
  Transmission Date: 20100525
  Serious: Yes (Other)
  Sender: FDA-Public Use
  Company Number: None

PATIENT
  Age: 41 Year
  Sex: Female
  Weight: 107.5025 kg

DRUGS (2)
  1. PEG-INTRON [Suspect]
     Indication: HEPATITIS C
     Dosage: 150 MCG ONCE WEEKLY SQ
     Route: 058
     Dates: start: 20091120
  2. RIBAPAK 600/600MG THREE RIVERS PHARM [Suspect]
     Dosage: 1200MG QD PO USED DAILY
     Route: 048
     Dates: start: 20091123

REACTIONS (3)
  - HAEMORRHAGE [None]
  - ORAL DISORDER [None]
  - THROMBOSIS [None]
